FAERS Safety Report 6607084-0 (Version None)
Quarter: 2010Q1

REPORT INFORMATION
  Report Type: 
  Country: None (occurrence: None)
  Receive Date: 20100219
  Receipt Date: 20100211
  Transmission Date: 20100710
  Serious: Yes (Other)
  Sender: FDA-Public Use
  Company Number: OMPQ-PR-1002S-0089

PATIENT
  Sex: Female

DRUGS (1)
  1. OMNIPAQUE 350 [Suspect]
     Indication: DRUG USE FOR UNKNOWN INDICATION
     Dosage: 80 ML, SINGLE DOSE, EXTRAVASATION
     Dates: start: 20050101, end: 20050101

REACTIONS (3)
  - INJECTION SITE EXTRAVASATION [None]
  - INJECTION SITE INJURY [None]
  - SURGERY [None]
